FAERS Safety Report 8449137-0 (Version None)
Quarter: 2012Q2

REPORT INFORMATION
  Report Type: 
  Country: None (occurrence: None)
  Receive Date: 20120619
  Receipt Date: 20120605
  Transmission Date: 20120825
  Serious: No
  Sender: FDA-Public Use
  Company Number: US-B.I. PHARMACEUTICALS,INC./RIDGEFIELD-2012-BP-13040BP

PATIENT
  Sex: Female

DRUGS (7)
  1. TOPROL-XL [Concomitant]
     Indication: HYPERTENSION
     Dosage: 50 MG
     Route: 048
     Dates: start: 20120301
  2. PRADAXA [Suspect]
     Indication: ATRIAL FIBRILLATION
     Dosage: 300 MG
     Route: 048
     Dates: start: 20111001, end: 20120301
  3. ASPIRIN [Suspect]
  4. QUINAPRIL [Concomitant]
     Indication: HYPERTENSION
     Dosage: 20 MG
     Dates: start: 20070101
  5. PRADAXA [Suspect]
     Dates: start: 20120307
  6. HYDROCHLOROTHIAZIDE [Concomitant]
     Indication: CARDIAC DISORDER
     Dosage: 50 MG
     Route: 048
     Dates: start: 20050101
  7. AMLODIPINE BESYLATE [Concomitant]
     Indication: HYPERTENSION
     Dosage: 5 MG
     Route: 048
     Dates: start: 20120401

REACTIONS (5)
  - ALOPECIA [None]
  - HAEMORRHAGE [None]
  - HYPOAESTHESIA [None]
  - CONTUSION [None]
  - EYE HAEMORRHAGE [None]
